FAERS Safety Report 5575028-9 (Version None)
Quarter: 2007Q4

REPORT INFORMATION
  Report Type: 
  Country: None (occurrence: None)
  Receive Date: 20071221
  Receipt Date: 20071221
  Transmission Date: 20080405
  Serious: Yes (Hospitalization, Other)
  Sender: FDA-Public Use
  Company Number: None

PATIENT
  Age: 63 Year
  Sex: Male
  Weight: 110.4 kg

DRUGS (24)
  1. TEMODAR [Suspect]
     Indication: GLIOBLASTOMA MULTIFORME
     Dosage: 75 MG/M^2 PO
     Route: 048
     Dates: start: 20071022, end: 20071203
  2. ZACTIMA [Suspect]
     Indication: GLIOBLASTOMA MULTIFORME
     Dosage: 200 MG QD PO
     Route: 048
     Dates: start: 20071016, end: 20071206
  3. ALLOPURINOL [Concomitant]
  4. ATENOLOL [Concomitant]
  5. ATOVAQUONE SUSPENSION [Concomitant]
  6. CARDURA [Concomitant]
  7. DECADRON [Concomitant]
  8. FOLIC ACID [Concomitant]
  9. KEPPRA [Concomitant]
  10. LANTUS [Concomitant]
  11. LASIX [Concomitant]
  12. LOMOTIL (DIPHENOXYLATE W/ATROPINE) [Concomitant]
  13. VITAMIN CAP [Concomitant]
  14. MYCELEX [Concomitant]
  15. NYSTATIN ELIXIR (NYSTATIN SUSPENSION) [Concomitant]
  16. NYSTATIN [Concomitant]
  17. PEPCID [Concomitant]
  18. PRAVACHOL (FINASTERIDE) [Concomitant]
  19. REGLAN [Concomitant]
  20. TRAMADOL HCL [Concomitant]
  21. TRAZODONE HCL [Concomitant]
  22. TRICOR (FENOFIBRATE (TRICOR)) [Concomitant]
  23. TYLENOL (CAPLET) [Concomitant]
  24. VALTREX [Concomitant]

REACTIONS (6)
  - LEUKOPENIA [None]
  - PANCYTOPENIA [None]
  - REFUSAL OF TREATMENT BY RELATIVE [None]
  - SEPSIS [None]
  - THROMBOCYTOPENIA [None]
  - UPPER GASTROINTESTINAL HAEMORRHAGE [None]
